FAERS Safety Report 10260554 (Version 1)
Quarter: 2014Q2

REPORT INFORMATION
  Report Type: Other
  Country: DE (occurrence: DE)
  Receive Date: 20140626
  Receipt Date: 20140626
  Transmission Date: 20141212
  Serious: No
  Sender: FDA-Public Use
  Company Number: DE-LUPIN PHARMACEUTICALS INC.-E2B_00002070

PATIENT
  Age: 29 Year
  Sex: Female
  Weight: 65 kg

DRUGS (1)
  1. TOPIRAMAT [Suspect]
     Indication: MIGRAINE
     Route: 048
     Dates: start: 201205, end: 201310

REACTIONS (1)
  - Necrobiosis lipoidica diabeticorum [Recovered/Resolved]
